FAERS Safety Report 7103807-5 (Version None)
Quarter: 2010Q4

REPORT INFORMATION
  Report Type: 
  Country: None (occurrence: None)
  Receive Date: 20101115
  Receipt Date: 20101108
  Transmission Date: 20110411
  Serious: Yes (Other)
  Sender: FDA-Public Use
  Company Number: DE-PFIZER INC-2010122722

PATIENT
  Age: 74 Year
  Sex: Female
  Weight: 69 kg

DRUGS (5)
  1. REVATIO [Suspect]
     Indication: PULMONARY ARTERIAL HYPERTENSION
     Dosage: 20 MG, 3X/DAY
     Route: 048
     Dates: start: 20100423, end: 20100901
  2. BOSENTAN [Concomitant]
     Dosage: 125 MG, 2X/DAY
     Dates: start: 20080501
  3. MARCUMAR [Concomitant]
     Dosage: UNK
     Dates: start: 20040801
  4. ATACAND [Concomitant]
     Dosage: 8 MG, 1X/DAY
     Dates: start: 20040801
  5. BISOPROLOL [Concomitant]
     Dosage: UNK
     Dates: start: 20080501

REACTIONS (5)
  - ABDOMINAL DISTENSION [None]
  - FLATULENCE [None]
  - NAUSEA [None]
  - PERISTALSIS VISIBLE [None]
  - PULMONARY ARTERIAL HYPERTENSION [None]
